FAERS Safety Report 5355024-7 (Version None)
Quarter: 2007Q2

REPORT INFORMATION
  Report Type: 
  Country: None (occurrence: None)
  Receive Date: 20070521
  Receipt Date: 20070405
  Transmission Date: 20071010
  Serious: No
  Sender: FDA-Public Use
  Company Number: WAES 0704USA01040

PATIENT
  Age: 77 Year
  Sex: Female
  Weight: 74.8435 kg

DRUGS (11)
  1. JANUVIA [Suspect]
     Indication: DIABETES MELLITUS NON-INSULIN-DEPENDENT
     Dosage: 100 MG/DAILY/PO
     Route: 048
     Dates: start: 20070306, end: 20070306
  2. METFORMIN HCL [Suspect]
     Indication: DIABETES MELLITUS
     Dosage: 500 MG/BID/PO
     Route: 048
     Dates: start: 20070306
  3. CLARINEX [Concomitant]
  4. HYTRIN [Concomitant]
  5. HYZAAR [Concomitant]
  6. LIPITOR [Concomitant]
  7. NORVASC [Concomitant]
  8. PLAVIX [Concomitant]
  9. TOPROL-XL [Concomitant]
  10. ZELNORM [Concomitant]
  11. NIACIN [Concomitant]

REACTIONS (5)
  - ANOREXIA [None]
  - DIZZINESS [None]
  - FEELING ABNORMAL [None]
  - NAUSEA [None]
  - VOMITING [None]
